FAERS Safety Report 6328304-6 (Version None)
Quarter: 2009Q3

REPORT INFORMATION
  Report Type: 
  Country: None (occurrence: None)
  Receive Date: 20090825
  Receipt Date: 20090522
  Transmission Date: 20100115
  Serious: Yes (Hospitalization, Other)
  Sender: FDA-Public Use
  Company Number: US-ABBOTT-09P-163-0574068-00

PATIENT
  Sex: Female
  Weight: 68.1 kg

DRUGS (7)
  1. SYNTHROID [Suspect]
     Indication: HYPOTHYROIDISM
     Route: 048
     Dates: start: 20030101, end: 20040101
  2. SYNTHROID [Suspect]
     Dates: start: 20050101, end: 20090101
  3. SYNTHROID [Suspect]
     Dates: start: 20090101
  4. ADVAIR HFA [Concomitant]
     Indication: ASTHMA
  5. ZYRTEC [Concomitant]
     Indication: HYPERSENSITIVITY
  6. NEXIUM [Concomitant]
     Indication: GASTROOESOPHAGEAL REFLUX DISEASE
  7. XOLAIR [Concomitant]
     Indication: HYPERSENSITIVITY

REACTIONS (8)
  - ANXIETY [None]
  - BLOOD THYROID STIMULATING HORMONE ABNORMAL [None]
  - COELIAC DISEASE [None]
  - FALL [None]
  - FEELING ABNORMAL [None]
  - FOOT FRACTURE [None]
  - HEART RATE INCREASED [None]
  - URINE ABNORMALITY [None]
